FAERS Safety Report 5918357-9 (Version None)
Quarter: 2008Q4

REPORT INFORMATION
  Report Type: 
  Country: None (occurrence: None)
  Receive Date: 20081010
  Receipt Date: 20081003
  Transmission Date: 20090506
  Serious: Yes (Hospitalization, Other)
  Sender: FDA-Public Use
  Company Number: 2007BI021232

PATIENT
  Age: 62 Year
  Sex: Male

DRUGS (1)
  1. TYSABRI [Suspect]
     Indication: MULTIPLE SCLEROSIS
     Dosage: 300 MG;QM;IV
     Route: 042
     Dates: start: 20070402, end: 20071201

REACTIONS (7)
  - ANXIETY [None]
  - CHOLECYSTECTOMY [None]
  - DISEASE PROGRESSION [None]
  - HALLUCINATION [None]
  - MULTIPLE SCLEROSIS [None]
  - PARTIAL SEIZURES [None]
  - UROSEPSIS [None]
